FAERS Safety Report 15308866 (Version 1)
Quarter: 2018Q3

REPORT INFORMATION
  Report Type: Spontaneous
  Country: US (occurrence: US)
  Receive Date: 20180822
  Receipt Date: 20180822
  Transmission Date: 20181010
  Serious: Yes (Other)
  Sender: FDA-Public Use
  Company Number: US-BIOGEN-2018BI00621918

PATIENT
  Sex: Male

DRUGS (1)
  1. SPINRAZA [Suspect]
     Active Substance: NUSINERSEN
     Indication: SPINAL MUSCULAR ATROPHY
     Route: 065

REACTIONS (6)
  - Increased appetite [Recovered/Resolved]
  - Sedation [Recovered/Resolved]
  - Memory impairment [Recovered/Resolved]
  - Autism spectrum disorder [Unknown]
  - Anaesthetic complication [Recovered/Resolved]
  - Feeling abnormal [Recovered/Resolved]
